FAERS Safety Report 25257372 (Version 2)
Quarter: 2025Q2

REPORT INFORMATION
  Report Type: Report from Study
  Country: US (occurrence: US)
  Receive Date: 20250430
  Receipt Date: 20250519
  Transmission Date: 20250716
  Serious: Yes (Hospitalization, Other)
  Sender: TAKEDA
  Company Number: US-TAKEDA-2021TUS060160

PATIENT
  Age: 49 Year
  Sex: Male
  Weight: 86 kg

DRUGS (11)
  1. BRIGATINIB [Suspect]
     Active Substance: BRIGATINIB
     Indication: Lung neoplasm malignant
     Dosage: 90 MILLIGRAM, QD
  2. BRIGATINIB [Suspect]
     Active Substance: BRIGATINIB
     Dosage: 180 MILLIGRAM, QD
     Dates: start: 20210428
  3. BRIGATINIB [Suspect]
     Active Substance: BRIGATINIB
     Dosage: 180 MILLIGRAM, QD
     Dates: start: 20210928
  4. BRIGATINIB [Suspect]
     Active Substance: BRIGATINIB
     Dosage: 180 MILLIGRAM, QD
  5. BRIGATINIB [Suspect]
     Active Substance: BRIGATINIB
     Dosage: 180 MILLIGRAM, QD
  6. BRIGATINIB [Suspect]
     Active Substance: BRIGATINIB
     Dosage: 180 MILLIGRAM, QD
  7. BRIGATINIB [Suspect]
     Active Substance: BRIGATINIB
     Dosage: 180 MILLIGRAM, QD
  8. BRIGATINIB [Suspect]
     Active Substance: BRIGATINIB
     Dosage: 180 MILLIGRAM, QD
  9. BRIGATINIB [Suspect]
     Active Substance: BRIGATINIB
     Dosage: 180 MILLIGRAM, QD
  10. BRIGATINIB [Suspect]
     Active Substance: BRIGATINIB
     Dosage: 180 MILLIGRAM, QD
  11. COVID-19 VACCINE NOS [Suspect]
     Active Substance: COVID-19 VACCINE
     Indication: Product used for unknown indication

REACTIONS (39)
  - Metastases to central nervous system [Not Recovered/Not Resolved]
  - Acne [Unknown]
  - Malaise [Unknown]
  - Limb discomfort [Unknown]
  - Lethargy [Unknown]
  - Drug ineffective [Unknown]
  - Muscle spasms [Unknown]
  - Mental disorder [Unknown]
  - Gastrointestinal disorder [Unknown]
  - Blister [Unknown]
  - Epistaxis [Recovered/Resolved]
  - Urine analysis abnormal [Unknown]
  - Feeling abnormal [Unknown]
  - Sinus disorder [Unknown]
  - Oral herpes [Unknown]
  - Skin disorder [Unknown]
  - Illness [Unknown]
  - Infection [Unknown]
  - Muscle discomfort [Unknown]
  - Lung disorder [Unknown]
  - Nasal discharge discolouration [Unknown]
  - Cough [Unknown]
  - Dizziness [Unknown]
  - Migraine [Unknown]
  - Back pain [Unknown]
  - Musculoskeletal stiffness [Unknown]
  - Urticaria [Unknown]
  - Headache [Unknown]
  - Blood pressure increased [Unknown]
  - Rash [Unknown]
  - Aspartate aminotransferase increased [Unknown]
  - Pain [Unknown]
  - Muscle tightness [Unknown]
  - Blood creatine phosphokinase increased [Unknown]
  - Nausea [Recovered/Resolved]
  - Myalgia [Unknown]
  - Visual impairment [Unknown]
  - Lymphocyte count decreased [Unknown]
  - Diarrhoea [Unknown]

NARRATIVE: CASE EVENT DATE: 20211101
